FAERS Safety Report 7038282-2 (Version None)
Quarter: 2010Q4

REPORT INFORMATION
  Report Type: 
  Country: None (occurrence: None)
  Receive Date: 20101011
  Receipt Date: 20091104
  Transmission Date: 20110411
  Serious: No
  Sender: FDA-Public Use
  Company Number: US-PFIZER INC-2009269879

PATIENT
  Age: 52 Year
  Sex: Male
  Weight: 97.522 kg

DRUGS (3)
  1. NEURONTIN [Suspect]
     Dosage: 400 MG, 3X/DAY
     Dates: start: 20090101
  2. ZYPREXA [Concomitant]
     Dosage: 10 MG, BEDTIME
  3. VISTARIL [Concomitant]
     Dosage: UNK

REACTIONS (1)
  - ANXIETY [None]
